FAERS Safety Report 5738794-5 (Version None)
Quarter: 2008Q2

REPORT INFORMATION
  Report Type: 
  Country: None (occurrence: None)
  Receive Date: 20080515
  Receipt Date: 20080304
  Transmission Date: 20081010
  Serious: No
  Sender: FDA-Public Use
  Company Number: A0713291A

PATIENT
  Age: 54 Year
  Sex: Female

DRUGS (5)
  1. VERAMYST [Suspect]
     Indication: SINUSITIS
     Dosage: 2PUFF PER DAY
     Route: 045
     Dates: start: 20080109
  2. ATENOLOL [Concomitant]
  3. ASPIRIN [Concomitant]
  4. SINGULAIR [Concomitant]
  5. VITAMINS [Concomitant]

REACTIONS (1)
  - FEELING ABNORMAL [None]
